FAERS Safety Report 19148448 (Version 2)
Quarter: 2021Q2

REPORT INFORMATION
  Report Type: Spontaneous
  Country: IT (occurrence: IT)
  Receive Date: 20210416
  Receipt Date: 20210416
  Transmission Date: 20210717
  Serious: Yes (Other)
  Sender: FDA-Public Use
  Company Number: IT-MYLANLABS-2021M1022269

PATIENT
  Age: 45 Year
  Sex: Male

DRUGS (6)
  1. RIVOTRIL [Concomitant]
     Active Substance: CLONAZEPAM
     Dosage: UNK
  2. PARIET [Suspect]
     Active Substance: RABEPRAZOLE SODIUM
     Indication: PROPHYLAXIS AGAINST GASTROINTESTINAL ULCER
     Dosage: 1 DOSAGE FORM, QD
     Dates: start: 20200914, end: 20200928
  3. COLCHICINE. [Suspect]
     Active Substance: COLCHICINE
     Indication: PERICARDITIS
     Dosage: 1 MILLIGRAM, QD
     Route: 048
     Dates: start: 20200914, end: 20201002
  4. ASPIRINA [Suspect]
     Active Substance: ASPIRIN
     Indication: PERICARDITIS
     Dosage: 3 GRAM, QD
     Route: 048
     Dates: start: 20200914, end: 20200928
  5. QUETIAPINE. [Concomitant]
     Active Substance: QUETIAPINE
     Dosage: 200 MILLIGRAM, QD
     Route: 048
  6. GABAPENTIN. [Concomitant]
     Active Substance: GABAPENTIN
     Dosage: 300 MILLIGRAM, QD

REACTIONS (2)
  - Intentional product misuse [Unknown]
  - Pericarditis [Unknown]

NARRATIVE: CASE EVENT DATE: 20201003
